FAERS Safety Report 8847713 (Version 2)
Quarter: 2012Q4

REPORT INFORMATION
  Report Type: Report from Study
  Country: DE (occurrence: DE)
  Receive Date: 20121018
  Receipt Date: 20121205
  Transmission Date: 20130627
  Serious: Yes (Death, Hospitalization, Other)
  Sender: FDA-Public Use
  Company Number: DE-CELGENEUS-062-50794-12080015

PATIENT
  Age: 77 Year
  Sex: Male
  Weight: 98.4 kg

DRUGS (12)
  1. VIDAZA [Suspect]
     Indication: ACUTE MYELOID LEUKAEMIA
     Dosage: 75 milligram/sq. meter
     Route: 058
     Dates: start: 20120612, end: 20120620
  2. VIDAZA [Suspect]
     Dosage: 75 milligram/sq. meter
     Route: 058
     Dates: start: 20110709, end: 20120717
  3. RAMIPRIL [Concomitant]
     Indication: HYPERTENSION ARTERIAL
     Route: 065
  4. HCT [Concomitant]
     Indication: HYPERTENSION ARTERIAL
     Route: 065
  5. NIFEDIPINE [Concomitant]
     Indication: DRUG USE FOR UNKNOWN INDICATION
     Dosage: 40 Dosage forms
     Route: 065
  6. METFORMIN [Concomitant]
     Indication: TYPE II DIABETES MELLITUS
     Dosage: 2000 Milligram
     Route: 065
  7. ISOPHANE INSULIN [Concomitant]
     Indication: TYPE II DIABETES MELLITUS
     Route: 065
  8. METOHEXAL [Concomitant]
     Indication: AORTIC VALVE STENOSIS
     Dosage: 95 Milligram
     Route: 065
  9. TORASEMIDE [Concomitant]
     Indication: AORTIC VALVE STENOSIS
     Dosage: 20 Milligram
     Route: 065
  10. SIMVASTATIN [Concomitant]
     Indication: HYPERCHOLESTERAEMIA
     Route: 065
  11. LEVOFLOXACIN [Concomitant]
     Indication: PROPHYLAXIS
     Route: 065
     Dates: start: 20120614
  12. NITRENDIPINE [Concomitant]
     Indication: HYPERTENSION ARTERIAL
     Dosage: 40 Dosage forms
     Route: 065

REACTIONS (12)
  - Blood glucose abnormal [Recovered/Resolved]
  - Pneumonia [Fatal]
  - Epistaxis [Not Recovered/Not Resolved]
  - Pyrexia [Not Recovered/Not Resolved]
  - General physical health deterioration [Not Recovered/Not Resolved]
  - Febrile neutropenia [Not Recovered/Not Resolved]
  - Blood pressure increased [Recovered/Resolved]
  - Erythema [Recovered/Resolved]
  - Erythema [Recovered/Resolved]
  - Pain [Recovered/Resolved]
  - Fatigue [Recovered/Resolved]
  - Fatigue [Recovered/Resolved]
